FAERS Safety Report 8230252-1 (Version None)
Quarter: 2012Q1

REPORT INFORMATION
  Report Type: 
  Country: None (occurrence: None)
  Receive Date: 20120321
  Receipt Date: 20120321
  Transmission Date: 20120608
  Serious: Yes (Disabling, Other)
  Sender: FDA-Public Use
  Company Number: None

PATIENT
  Sex: Female
  Weight: 84.8226 kg

DRUGS (1)
  1. TOPIRAMATE [Suspect]
     Indication: BIPOLAR I DISORDER
     Dosage: 100 MG ONE BY MOUTH IN AM AND 2 TABS BY MOUTH AT BEDTIME
     Route: 048
     Dates: start: 20120217, end: 20120302

REACTIONS (2)
  - EYE PAIN [None]
  - VISION BLURRED [None]
